FAERS Safety Report 9463924 (Version 1)
Quarter: 2013Q3

REPORT INFORMATION
  Report Type: Spontaneous
  Country: ES (occurrence: ES)
  Receive Date: 20130819
  Receipt Date: 20130819
  Transmission Date: 20140515
  Serious: Yes (Other)
  Sender: FDA-Public Use
  Company Number: ES-JNJFOC-20130806656

PATIENT
  Age: 50 Year
  Sex: Male

DRUGS (1)
  1. INVEGA [Suspect]
     Indication: NEUROSIS
     Route: 048
     Dates: start: 20130702, end: 20130715

REACTIONS (5)
  - Neuralgia [Recovering/Resolving]
  - Abdominal distension [Recovering/Resolving]
  - Nausea [Recovering/Resolving]
  - Diarrhoea [Recovering/Resolving]
  - Tachycardia [Recovering/Resolving]
